FAERS Safety Report 8303932-7 (Version None)
Quarter: 2012Q2

REPORT INFORMATION
  Report Type: 
  Country: None (occurrence: None)
  Receive Date: 20120423
  Receipt Date: 20120418
  Transmission Date: 20120825
  Serious: Yes (Hospitalization)
  Sender: FDA-Public Use
  Company Number: PHEH2012US003834

PATIENT
  Sex: Female
  Weight: 54.422 kg

DRUGS (2)
  1. NEURONTIN [Suspect]
     Indication: CONVULSION
     Dosage: 600 MG, TID
     Route: 048
     Dates: start: 20060101
  2. TEGRETOL [Suspect]
     Indication: CONVULSION
     Dosage: 200 MG, TID
     Route: 048
     Dates: start: 20060101

REACTIONS (3)
  - LIVER DISORDER [None]
  - MYOCARDIAL INFARCTION [None]
  - BODY DYSMORPHIC DISORDER [None]
